FAERS Safety Report 7141263-1 (Version None)
Quarter: 2010Q4

REPORT INFORMATION
  Report Type: 
  Country: None (occurrence: None)
  Receive Date: 20101207
  Receipt Date: 20101130
  Transmission Date: 20110411
  Serious: Yes (Hospitalization)
  Sender: FDA-Public Use
  Company Number: FR-BRISTOL-MYERS SQUIBB COMPANY-15416365

PATIENT
  Age: 5 Decade
  Sex: Female

DRUGS (4)
  1. REYATAZ [Suspect]
     Dates: start: 20100101
  2. SUSTIVA [Suspect]
  3. RITONAVIR [Suspect]
     Dates: start: 20100101
  4. VIREAD [Suspect]

REACTIONS (1)
  - OESOPHAGEAL ULCER [None]
